FAERS Safety Report 9168788 (Version 1)
Quarter: 2013Q1

REPORT INFORMATION
  Report Type: Spontaneous
  Country: US (occurrence: US)
  Receive Date: 20130318
  Receipt Date: 20130318
  Transmission Date: 20140127
  Serious: No
  Sender: FDA-Public Use
  Company Number: US-PFIZER INC-2013086898

PATIENT
  Age: 14 Year
  Sex: Female
  Weight: 52.15 kg

DRUGS (4)
  1. ZOLOFT [Suspect]
     Indication: SOCIAL PHOBIA
     Dosage: 50 MG, 1X/DAY
     Route: 048
  2. ZOLOFT [Suspect]
     Indication: OBSESSIVE-COMPULSIVE DISORDER
     Dosage: 100 MG, 1X/DAY
     Route: 048
  3. ZOLOFT [Suspect]
     Dosage: 150 MG (ONE TABLET OF 50MG AND ONE TABLET OF 100MG), 1X/DAY
     Route: 048
     Dates: end: 201302
  4. ZOLOFT [Suspect]
     Dosage: 200 MG (TWO TABLETS OF 100MG), 1X/DAY
     Route: 048
     Dates: start: 201302

REACTIONS (2)
  - Drug ineffective [Unknown]
  - Menorrhagia [Not Recovered/Not Resolved]
